FAERS Safety Report 11717061 (Version 1)
Quarter: 2015Q4

REPORT INFORMATION
  Report Type: Spontaneous
  Country: FR (occurrence: FR)
  Receive Date: 20151109
  Receipt Date: 20151109
  Transmission Date: 20160304
  Serious: Yes (Hospitalization)
  Sender: FDA-Public Use
  Company Number: FR-PFIZER INC-2015375148

PATIENT
  Age: 49 Year
  Sex: Female

DRUGS (1)
  1. ADEPAL [Suspect]
     Active Substance: ETHINYL ESTRADIOL\LEVONORGESTREL
     Indication: CONTRACEPTION
     Dosage: 1 DF, DAILY DURING 21 DAYS
     Route: 048
     Dates: start: 2005, end: 20150825

REACTIONS (4)
  - Myocardial infarction [Recovered/Resolved with Sequelae]
  - Ventricular fibrillation [Recovered/Resolved with Sequelae]
  - Cardiac arrest [Recovered/Resolved with Sequelae]
  - Coronary angioplasty [Recovered/Resolved with Sequelae]

NARRATIVE: CASE EVENT DATE: 20150826
